FAERS Safety Report 11613914 (Version 3)
Quarter: 2015Q4

REPORT INFORMATION
  Report Type: Report from Study
  Country: US (occurrence: US)
  Receive Date: 20151008
  Receipt Date: 20151016
  Transmission Date: 20160304
  Serious: Yes (Life-Threatening)
  Sender: FDA-Public Use
  Company Number: US-CELGENE-USA-2015097333

PATIENT
  Age: 62 Year
  Sex: Male
  Weight: 65.1 kg

DRUGS (2)
  1. REVLIMID [Suspect]
     Active Substance: LENALIDOMIDE
     Indication: PLASMA CELL MYELOMA
     Route: 048
     Dates: start: 20070820, end: 20150923
  2. REVLIMID [Suspect]
     Active Substance: LENALIDOMIDE
     Route: 048
     Dates: start: 20150811, end: 20150813

REACTIONS (1)
  - B-cell type acute leukaemia [Not Recovered/Not Resolved]

NARRATIVE: CASE EVENT DATE: 20150922
